FAERS Safety Report 7211207-2 (Version None)
Quarter: 2011Q1

REPORT INFORMATION
  Report Type: 
  Country: None (occurrence: None)
  Receive Date: 20110105
  Receipt Date: 20101223
  Transmission Date: 20110831
  Serious: Yes (Death)
  Sender: FDA-Public Use
  Company Number: US-CELGENEUS-163-21880-10122924

PATIENT
  Sex: Female

DRUGS (10)
  1. LOMOTIL [Concomitant]
     Route: 048
  2. DEXAMETHASONE [Concomitant]
     Route: 048
  3. CODEINE SUL TAB [Concomitant]
     Route: 048
  4. VICODIN [Concomitant]
     Dosage: 5-500MG
     Route: 048
  5. PROTONIX [Concomitant]
     Route: 048
  6. VITAMINS AND MINERALS [Concomitant]
     Route: 048
  7. REVLIMID [Suspect]
     Indication: LYMPHOMA
     Route: 048
     Dates: start: 20101001
  8. ACYCLOVIR [Concomitant]
     Route: 048
  9. POTASSIUM [Concomitant]
     Route: 048
  10. TRAMADOL HCL [Concomitant]
     Route: 048

REACTIONS (1)
  - DEATH [None]
